APPROVED DRUG PRODUCT: DEXTROSE 5%
Active Ingredient: DEXTROSE
Strength: 50MG/ML
Dosage Form/Route: INJECTABLE;INJECTION
Application: A217263 | Product #001
Applicant: AMERICAN REGENT INC
Approved: Apr 8, 2024 | RLD: No | RS: No | Type: DISCN